FAERS Safety Report 14492030 (Version 5)
Quarter: 2018Q3

REPORT INFORMATION
  Report Type: Report from Study
  Country: FI (occurrence: FI)
  Receive Date: 20180206
  Receipt Date: 20180711
  Transmission Date: 20181010
  Serious: Yes (Hospitalization)
  Sender: FDA-Public Use
  Company Number: FI-EISAI MEDICAL RESEARCH-EC-2018-035744

PATIENT
  Age: 52 Year
  Sex: Female
  Weight: 96 kg

DRUGS (17)
  1. EVEROLIMUS. [Suspect]
     Active Substance: EVEROLIMUS
     Indication: METASTATIC RENAL CELL CARCINOMA
     Route: 048
     Dates: start: 20171205, end: 20180116
  2. HYPOLOC [Concomitant]
  3. ATORVASTATIN [Concomitant]
     Active Substance: ATORVASTATIN
  4. LENVATINIB [Suspect]
     Active Substance: LENVATINIB
     Dosage: DOSAGE UNKNOWN
     Route: 048
     Dates: start: 20180507, end: 20180507
  5. EVEROLIMUS. [Suspect]
     Active Substance: EVEROLIMUS
     Route: 048
     Dates: start: 20180117, end: 20180131
  6. OXYCONTIN [Concomitant]
     Active Substance: OXYCODONE HYDROCHLORIDE
  7. DYMISTA [Concomitant]
     Active Substance: AZELASTINE HYDROCHLORIDE\FLUTICASONE PROPIONATE
  8. LENVATINIB [Suspect]
     Active Substance: LENVATINIB
     Indication: METASTATIC RENAL CELL CARCINOMA
     Route: 048
     Dates: start: 20171205, end: 20180131
  9. EVEROLIMUS. [Suspect]
     Active Substance: EVEROLIMUS
     Route: 048
     Dates: start: 20180507, end: 20180507
  10. BEZALIP [Concomitant]
     Active Substance: BEZAFIBRATE
  11. LANTUS [Concomitant]
     Active Substance: INSULIN GLARGINE
  12. THYROXIN [Concomitant]
     Active Substance: LEVOTHYROXINE
  13. LENVATINIB [Suspect]
     Active Substance: LENVATINIB
     Route: 048
     Dates: start: 20180329, end: 20180505
  14. EVEROLIMUS. [Suspect]
     Active Substance: EVEROLIMUS
     Route: 048
     Dates: start: 20180215, end: 20180505
  15. LENVATINIB [Suspect]
     Active Substance: LENVATINIB
     Route: 048
     Dates: start: 20180215, end: 20180328
  16. CANDESARTAN/HYDROCH [Concomitant]
  17. KALCIPOS?D [Concomitant]
     Active Substance: CALCIUM CARBONATE\CHOLECALCIFEROL

REACTIONS (3)
  - Drug titration error [Recovered/Resolved]
  - Pneumothorax spontaneous [Recovered/Resolved]
  - Diarrhoea [Recovered/Resolved]

NARRATIVE: CASE EVENT DATE: 20180131
